FAERS Safety Report 9100760 (Version 1)
Quarter: 2013Q1

REPORT INFORMATION
  Report Type: Spontaneous
  Country: US (occurrence: US)
  Receive Date: 20130215
  Receipt Date: 20130215
  Transmission Date: 20140127
  Serious: No
  Sender: FDA-Public Use
  Company Number: US-PFIZER INC-2013059582

PATIENT
  Age: 35 Year
  Sex: Female
  Weight: 109 kg

DRUGS (3)
  1. GABAPENTIN [Suspect]
     Indication: PAIN IN EXTREMITY
     Dosage: ONE TO THREE CAPSULES OF 100 MG, 3X/DAY
     Route: 048
     Dates: start: 201211, end: 201301
  2. GABAPENTIN [Suspect]
     Indication: FIBROMYALGIA
  3. ALLEGRA [Concomitant]
     Indication: HYPERSENSITIVITY
     Dosage: UNK

REACTIONS (2)
  - Drug ineffective for unapproved indication [Unknown]
  - Off label use [Unknown]
